FAERS Safety Report 7437200-2 (Version None)
Quarter: 2011Q2

REPORT INFORMATION
  Report Type: 
  Country: None (occurrence: None)
  Receive Date: 20110426
  Receipt Date: 20100304
  Transmission Date: 20111010
  Serious: Yes (Death, Other)
  Sender: FDA-Public Use
  Company Number: US-BAYER-201015774NA

PATIENT
  Age: 55 Year
  Sex: Female
  Weight: 77.551 kg

DRUGS (7)
  1. TRASYLOL [Suspect]
     Indication: CARDIAC OPERATION
     Dosage: UNK
     Route: 042
     Dates: start: 20071009
  2. LIPITOR [Concomitant]
  3. TRASYLOL [Suspect]
     Indication: CORONARY ARTERY BYPASS
  4. TRASYLOL [Suspect]
     Indication: AORTIC SURGERY
  5. METOPROLOL [Concomitant]
  6. TRASYLOL [Suspect]
     Indication: AORTIC VALVE REPAIR
  7. PLAVIX [Concomitant]

REACTIONS (5)
  - DEATH [None]
  - INJURY [None]
  - RENAL FAILURE [None]
  - MYOCARDIAL INFARCTION [None]
  - CEREBROVASCULAR ACCIDENT [None]
